FAERS Safety Report 8785794 (Version 1)
Quarter: 2012Q4

REPORT INFORMATION
  Report Type: 
  Country: GB (occurrence: GB)
  Receive Date: 20120914
  Receipt Date: 20120914
  Transmission Date: 20130627
  Serious: Yes (Disabling)
  Sender: FDA-Public Use
  Company Number: GB-GLAXOSMITHKLINE-B0827654A

PATIENT
  Age: 36 Year
  Sex: Male
  Weight: 103.41 kg

DRUGS (4)
  1. BETNOVATE [Suspect]
     Route: 061
     Dates: start: 20120820
  2. CODEINE PHOSPHATE [Concomitant]
  3. PARACETAMOL [Concomitant]
  4. IBUPROFEN [Concomitant]

REACTIONS (3)
  - Burning sensation [Recovering/Resolving]
  - Wound secretion [Recovering/Resolving]
  - Hyperaesthesia [Recovering/Resolving]
